APPROVED DRUG PRODUCT: CLOBETASOL PROPIONATE
Active Ingredient: CLOBETASOL PROPIONATE
Strength: 0.05%
Dosage Form/Route: SPRAY;TOPICAL
Application: A208842 | Product #001 | TE Code: AT
Applicant: SUN PHARMA CANADA INC
Approved: Mar 26, 2018 | RLD: No | RS: No | Type: RX